FAERS Safety Report 12633118 (Version 2)
Quarter: 2016Q3

REPORT INFORMATION
  Report Type: Spontaneous
  Country: US (occurrence: US)
  Receive Date: 20160808
  Receipt Date: 20160808
  Transmission Date: 20161109
  Serious: No
  Sender: FDA-Public Use
  Company Number: US-BEH-2016058483

PATIENT
  Sex: Female
  Weight: 82 kg

DRUGS (24)
  1. HIZENTRA [Suspect]
     Active Substance: HUMAN IMMUNOGLOBULIN G
     Indication: HYPOGAMMAGLOBULINAEMIA
     Route: 058
     Dates: start: 20151207
  2. DIPHENHYDRAMINE. [Concomitant]
     Active Substance: DIPHENHYDRAMINE
  3. SYNTHROID [Concomitant]
     Active Substance: LEVOTHYROXINE SODIUM
  4. ALBUTEROL. [Concomitant]
     Active Substance: ALBUTEROL
  5. CELEBREX [Concomitant]
     Active Substance: CELECOXIB
  6. ZOLOFT [Concomitant]
     Active Substance: SERTRALINE HYDROCHLORIDE
  7. FEXOFENADINE [Concomitant]
     Active Substance: FEXOFENADINE\FEXOFENADINE HYDROCHLORIDE
  8. SIMVASTATIN. [Concomitant]
     Active Substance: SIMVASTATIN
  9. VOLTAREN [Concomitant]
     Active Substance: DICLOFENAC SODIUM
  10. EPIPEN [Concomitant]
     Active Substance: EPINEPHRINE
  11. EUFLEXXA [Concomitant]
     Active Substance: HYALURONATE SODIUM
  12. PATADAY [Concomitant]
     Active Substance: OLOPATADINE HYDROCHLORIDE
  13. ADDERALL [Concomitant]
     Active Substance: AMPHETAMINE ASPARTATE\AMPHETAMINE SULFATE\DEXTROAMPHETAMINE SACCHARATE\DEXTROAMPHETAMINE SULFATE
  14. LIDOCAINE. [Concomitant]
     Active Substance: LIDOCAINE
  15. ALLOPURINOL. [Concomitant]
     Active Substance: ALLOPURINOL
  16. RELPAX [Concomitant]
     Active Substance: ELETRIPTAN HYDROBROMIDE
  17. SINGULAIR [Concomitant]
     Active Substance: MONTELUKAST SODIUM
  18. HYZAAR [Concomitant]
     Active Substance: HYDROCHLOROTHIAZIDE\LOSARTAN POTASSIUM
  19. VAGIFEM [Concomitant]
     Active Substance: ESTRADIOL
  20. ZYRTEC [Concomitant]
     Active Substance: CETIRIZINE HYDROCHLORIDE
  21. LMX [Concomitant]
     Active Substance: LIDOCAINE
  22. KETOCONAZOLE. [Concomitant]
     Active Substance: KETOCONAZOLE
  23. RESTASIS [Concomitant]
     Active Substance: CYCLOSPORINE
  24. NASONEX [Concomitant]
     Active Substance: MOMETASONE FUROATE

REACTIONS (2)
  - Administration site extravasation [Unknown]
  - Bronchitis [Unknown]
